FAERS Safety Report 6771560-0 (Version None)
Quarter: 2010Q2

REPORT INFORMATION
  Report Type: 
  Country: None (occurrence: None)
  Receive Date: 20100616
  Receipt Date: 20100610
  Transmission Date: 20101027
  Serious: Yes (Life-Threatening, Other)
  Sender: FDA-Public Use
  Company Number: PL-ROCHE-708954

PATIENT
  Age: 70 Year
  Sex: Female

DRUGS (2)
  1. XELODA [Suspect]
     Indication: COLORECTAL CANCER METASTATIC
     Dosage: FREQUENCY: 2 X DAY
     Route: 065
  2. OXALIPLATIN [Concomitant]
     Indication: COLORECTAL CANCER METASTATIC
     Route: 065

REACTIONS (3)
  - ABDOMINAL RIGIDITY [None]
  - BLISTER [None]
  - ERYTHEMA [None]
